FAERS Safety Report 5347435-0 (Version None)
Quarter: 2007Q2

REPORT INFORMATION
  Report Type: 
  Country: None (occurrence: None)
  Receive Date: 20070604
  Receipt Date: 20070604
  Transmission Date: 20071010
  Serious: Yes (Hospitalization, Other)
  Sender: FDA-Public Use
  Company Number: None

PATIENT
  Age: 30 Year
  Sex: Female
  Weight: 74.8435 kg

DRUGS (1)
  1. YASMIN [Suspect]
     Indication: CONTRACEPTION
     Dosage: ONE DAILY
     Dates: start: 19980301, end: 20070601

REACTIONS (11)
  - DIZZINESS [None]
  - DYSMENORRHOEA [None]
  - DYSPNOEA [None]
  - EYE SWELLING [None]
  - FOOD ALLERGY [None]
  - HEART RATE INCREASED [None]
  - HYPERHIDROSIS [None]
  - LIP SWELLING [None]
  - MENORRHAGIA [None]
  - REACTION TO DRUG EXCIPIENTS [None]
  - SWOLLEN TONGUE [None]
